FAERS Safety Report 5664365-5 (Version None)
Quarter: 2008Q1

REPORT INFORMATION
  Report Type: 
  Country: None (occurrence: None)
  Receive Date: 20080311
  Receipt Date: 20080311
  Transmission Date: 20080703
  Serious: Yes (Disabling, Congenital Anomaly)
  Sender: FDA-Public Use
  Company Number: None

PATIENT
  Sex: Male

DRUGS (1)
  1. LEVETIRACETAM [Suspect]
     Indication: EPILEPSY
     Dosage: 750MG BID PO  ENTIRE PREGNANCY
     Route: 048
     Dates: start: 20051001, end: 20080310

REACTIONS (2)
  - DRUG EXPOSURE DURING PREGNANCY [None]
  - SPEECH DISORDER DEVELOPMENTAL [None]
